FAERS Safety Report 12095607 (Version 1)
Quarter: 2016Q1

REPORT INFORMATION
  Report Type: Spontaneous
  Country: US (occurrence: US)
  Receive Date: 20160219
  Receipt Date: 20160219
  Transmission Date: 20160526
  Serious: No
  Sender: FDA-Public Use
  Company Number: US-TEVA-636174USA

PATIENT
  Age: 48 Year
  Sex: Female

DRUGS (1)
  1. COPAXONE [Suspect]
     Active Substance: GLATIRAMER ACETATE
     Indication: MULTIPLE SCLEROSIS
     Route: 058

REACTIONS (5)
  - Feeling hot [Recovered/Resolved]
  - Palpitations [Recovered/Resolved]
  - Dizziness [Recovered/Resolved]
  - Drug administration error [Recovered/Resolved]
  - Injection site reaction [Recovered/Resolved]

NARRATIVE: CASE EVENT DATE: 201601
